FAERS Safety Report 5447405-8 (Version None)
Quarter: 2007Q3

REPORT INFORMATION
  Report Type: 
  Country: None (occurrence: None)
  Receive Date: 20070910
  Receipt Date: 20070827
  Transmission Date: 20080115
  Serious: Yes (Death)
  Sender: FDA-Public Use
  Company Number: TW-SANOFI-SYNTHELABO-A01200709653

PATIENT
  Age: 69 Year
  Sex: Male

DRUGS (5)
  1. CYCLOSPORINE [Concomitant]
     Indication: RENAL TRANSPLANT
  2. MYCOPHENOLATE MOFETIL [Concomitant]
     Indication: RENAL TRANSPLANT
  3. PREDNISOLONE [Suspect]
     Indication: RENAL TRANSPLANT
  4. PREDNISOLONE [Suspect]
  5. PREDNISOLONE [Suspect]

REACTIONS (1)
  - HEPATITIS B [None]
